FAERS Safety Report 8366051-X (Version None)
Quarter: 2012Q2

REPORT INFORMATION
  Report Type: 
  Country: None (occurrence: None)
  Receive Date: 20120516
  Receipt Date: 20120516
  Transmission Date: 20120825
  Serious: No
  Sender: FDA-Public Use
  Company Number: None

PATIENT
  Sex: Female
  Weight: 103.4201 kg

DRUGS (1)
  1. AMLODIPINE BESYLATE AND BENAZEPRIL HCL [Suspect]
     Indication: HYPERTENSION
     Dosage: 5-10 1 A DAY
     Dates: start: 20120101, end: 20120413

REACTIONS (3)
  - URINE ANALYSIS ABNORMAL [None]
  - COUGH [None]
  - RENAL FUNCTION TEST ABNORMAL [None]
